FAERS Safety Report 20148683 (Version 1)
Quarter: 2021Q4

REPORT INFORMATION
  Report Type: Spontaneous
  Country: PL (occurrence: PL)
  Receive Date: 20211204
  Receipt Date: 20211204
  Transmission Date: 20220303
  Serious: Yes (Other)
  Sender: FDA-Public Use
  Company Number: PL-NOVARTISPH-NVSC2021PL271425

PATIENT
  Age: 44 Year
  Sex: Female

DRUGS (1)
  1. MIDOSTAURIN [Suspect]
     Active Substance: MIDOSTAURIN
     Indication: Acute myeloid leukaemia
     Dosage: 100 MG, QD (DAYS 8-21)
     Route: 065

REACTIONS (3)
  - Remission not achieved [Unknown]
  - Unresponsive to stimuli [Unknown]
  - Off label use [Unknown]
